FAERS Safety Report 25182563 (Version 1)
Quarter: 2025Q2

REPORT INFORMATION
  Report Type: Spontaneous
  Country: FR (occurrence: FR)
  Receive Date: 20250410
  Receipt Date: 20250410
  Transmission Date: 20250716
  Serious: Yes (Hospitalization, Other)
  Sender: RANBAXY
  Company Number: FR-SUN PHARMACEUTICAL INDUSTRIES LTD-2025RR-502742

PATIENT
  Age: 89 Year
  Sex: Female
  Weight: 52 kg

DRUGS (18)
  1. ATENOLOL [Suspect]
     Active Substance: ATENOLOL
     Indication: Atrial fibrillation
     Dosage: 1-0-0
     Route: 048
     Dates: start: 20241117
  2. CIPROFLOXACIN [Suspect]
     Active Substance: CIPROFLOXACIN
     Indication: Bacterial pyelonephritis
     Dosage: 1-0-0
     Route: 048
     Dates: start: 20241119, end: 20241124
  3. CEFTRIAXONE [Suspect]
     Active Substance: CEFTRIAXONE
     Indication: Klebsiella bacteraemia
     Dosage: 1 GRAM, DAILY
     Route: 040
     Dates: start: 20241116, end: 20241119
  4. METHOTREXATE [Suspect]
     Active Substance: METHOTREXATE
     Indication: Rheumatoid arthritis
     Dosage: 10 MILLIGRAM, 1/WEEK
     Route: 058
     Dates: start: 2010, end: 202407
  5. METHOTREXATE [Suspect]
     Active Substance: METHOTREXATE
     Dosage: 7.5 MILLIGRAM, 1/WEEK
     Route: 065
     Dates: start: 202407, end: 20241115
  6. METHOTREXATE [Suspect]
     Active Substance: METHOTREXATE
     Dosage: 10 MILLIGRAM, 1/WEEK
     Route: 065
     Dates: start: 20241205, end: 20241231
  7. METRONIDAZOLE [Suspect]
     Active Substance: METRONIDAZOLE
     Indication: Klebsiella bacteraemia
     Dosage: 1-1-1
     Route: 048
     Dates: start: 20241117, end: 20241118
  8. ELIQUIS [Suspect]
     Active Substance: APIXABAN
     Indication: Atrial fibrillation
     Dosage: 1-0-1
     Route: 048
     Dates: start: 20241117
  9. FUROSEMIDE [Suspect]
     Active Substance: FUROSEMIDE
     Indication: Cardiac failure
     Route: 040
     Dates: start: 20241117, end: 20241117
  10. FUROSEMIDE [Suspect]
     Active Substance: FUROSEMIDE
     Dosage: 80 MG OVER 24 HOURS IVSE
     Route: 065
     Dates: start: 20241117, end: 20241120
  11. FUROSEMIDE [Suspect]
     Active Substance: FUROSEMIDE
     Dosage: 40-20-0MG
     Route: 048
     Dates: start: 20241120
  12. PREDNISONE [Concomitant]
     Active Substance: PREDNISONE
     Indication: Rheumatoid arthritis
     Dosage: 1-0-0
     Route: 048
  13. LOSARTAN [Concomitant]
     Active Substance: LOSARTAN
     Indication: Hypertension
     Dosage: 1-0-0
     Route: 048
  14. LOSARTAN [Concomitant]
     Active Substance: LOSARTAN
     Indication: Nephroprotective therapy
  15. ESOMEPRAZOLE [Concomitant]
     Active Substance: ESOMEPRAZOLE
     Indication: Product used for unknown indication
     Dosage: 0-0-1
     Route: 048
  16. FOLIC ACID [Concomitant]
     Active Substance: FOLIC ACID
     Indication: Anaemia folate deficiency
     Route: 048
     Dates: end: 20241202
  17. FOLIC ACID [Concomitant]
     Active Substance: FOLIC ACID
     Indication: Prophylaxis
     Dosage: 1-0-0
     Route: 048
     Dates: start: 20241202
  18. MIANSERIN HYDROCHLORIDE [Concomitant]
     Active Substance: MIANSERIN HYDROCHLORIDE
     Indication: Product used for unknown indication
     Dosage: 0-0-1
     Route: 048
     Dates: start: 202306

REACTIONS (1)
  - Pancytopenia [Recovered/Resolved]

NARRATIVE: CASE EVENT DATE: 20241230
